FAERS Safety Report 15989231 (Version 1)
Quarter: 2019Q1

REPORT INFORMATION
  Report Type: Spontaneous
  Country: US (occurrence: US)
  Receive Date: 20190220
  Receipt Date: 20190220
  Transmission Date: 20190418
  Serious: No
  Sender: FDA-Public Use
  Company Number: None

PATIENT
  Age: 6 Month

DRUGS (1)
  1. STYE [Suspect]
     Active Substance: MINERAL OIL\PETROLATUM
     Route: 047

REACTIONS (4)
  - Product residue present [None]
  - Infection [None]
  - Corneal deposits [None]
  - Exposure keratitis [None]

NARRATIVE: CASE EVENT DATE: 20190214
